FAERS Safety Report 6937313-5 (Version None)
Quarter: 2010Q3

REPORT INFORMATION
  Report Type: 
  Country: None (occurrence: None)
  Receive Date: 20100823
  Receipt Date: 20100812
  Transmission Date: 20110219
  Serious: Yes (Hospitalization)
  Sender: FDA-Public Use
  Company Number: US-JNJFOC-20100804854

PATIENT
  Sex: Male
  Weight: 14.7 kg

DRUGS (3)
  1. BLINDED; INFLIXIMAB, RECOMBINANT [Suspect]
     Indication: KAWASAKI'S DISEASE
     Route: 042
  2. PLACEBO [Suspect]
     Indication: KAWASAKI'S DISEASE
     Route: 042
  3. IMMUNOGLOBULINS NOS [Concomitant]
     Indication: KAWASAKI'S DISEASE
     Route: 042

REACTIONS (1)
  - CORONARY ARTERY DILATATION [None]
